FAERS Safety Report 9735447 (Version 1)
Quarter: 2013Q4

REPORT INFORMATION
  Report Type: Spontaneous
  Country: CO (occurrence: CO)
  Receive Date: 20131206
  Receipt Date: 20131206
  Transmission Date: 20140711
  Serious: Yes (Other)
  Sender: FDA-Public Use
  Company Number: CO-PFIZER INC-2013349488

PATIENT
  Age: 46 Year
  Sex: Male

DRUGS (4)
  1. NEURONTIN [Suspect]
     Indication: SPINAL DISORDER
     Dosage: 300 MG, UNK
     Dates: start: 2002
  2. NEURONTIN [Suspect]
     Indication: SCIATICA
     Dosage: 600 MG, UNK
     Route: 065
  3. NEURONTIN [Suspect]
     Dosage: 400 MG, UNK
     Route: 065
  4. VOLTAREN [Concomitant]
     Indication: SPINAL PAIN
     Dosage: UNK
     Route: 061
     Dates: start: 2002

REACTIONS (4)
  - Spinal disorder [Recovered/Resolved]
  - Drug ineffective [Recovered/Resolved]
  - Somnolence [Recovered/Resolved]
  - Discomfort [Recovered/Resolved]
